FAERS Safety Report 4398233-6 (Version None)
Quarter: 2004Q3

REPORT INFORMATION
  Report Type: 
  Country: None (occurrence: None)
  Receive Date: 20040715
  Receipt Date: 20040607
  Transmission Date: 20050211
  Serious: Yes (Hospitalization)
  Sender: FDA-Public Use
  Company Number: 200412255FR

PATIENT
  Age: 30 Year
  Sex: Female
  Weight: 47 kg

DRUGS (3)
  1. KETEK [Suspect]
     Indication: BRONCHITIS ACUTE
     Route: 048
     Dates: start: 20040315, end: 20040315
  2. KALETRA [Suspect]
     Indication: HIV INFECTION
     Dosage: DOSE UNIT: UNITS
     Route: 048
     Dates: start: 20040115
  3. COMBIVIR [Concomitant]
     Indication: HIV INFECTION
     Dosage: DOSE UNIT: UNITS
     Route: 048
     Dates: start: 20040115

REACTIONS (5)
  - BRONCHITIS ACUTE [None]
  - DRUG INTERACTION [None]
  - VISION BLURRED [None]
  - VISUAL ACUITY REDUCED [None]
  - VISUAL DISTURBANCE [None]
